FAERS Safety Report 17165284 (Version 5)
Quarter: 2021Q4

REPORT INFORMATION
  Report Type: Spontaneous
  Country: PT (occurrence: PT)
  Receive Date: 20191217
  Receipt Date: 20211119
  Transmission Date: 20220303
  Serious: Yes (Life-Threatening, Other)
  Sender: FDA-Public Use
  Company Number: PT-MYLANLABS-2019M1124239

PATIENT
  Age: 20 Year
  Sex: Male

DRUGS (5)
  1. IBUPROFEN [Suspect]
     Active Substance: IBUPROFEN
     Indication: Asthma
     Dosage: UNK
  2. FORMOTEROL [Suspect]
     Active Substance: FORMOTEROL
     Indication: Asthma
     Dosage: 4.5 UG, SOS
     Route: 065
  3. BUDESONIDE [Suspect]
     Active Substance: BUDESONIDE
     Indication: Asthma
     Dosage: 160 UG, SOS
     Route: 065
  4. ASPIRIN [Suspect]
     Active Substance: ASPIRIN
     Indication: Product used for unknown indication
     Dosage: UNK
  5. BUDESONIDE\FORMOTEROL [Concomitant]
     Active Substance: BUDESONIDE\FORMOTEROL
     Indication: Asthmatic crisis
     Dosage: UNK

REACTIONS (14)
  - Anaphylactic reaction [Recovered/Resolved]
  - Drug intolerance [Unknown]
  - Condition aggravated [Unknown]
  - Anosmia [Not Recovered/Not Resolved]
  - Nasal obstruction [Recovering/Resolving]
  - Nasal polyps [Unknown]
  - Nasal turbinate hypertrophy [Unknown]
  - Taste disorder [Not Recovered/Not Resolved]
  - Asthma [Not Recovered/Not Resolved]
  - Bronchial disorder [Recovering/Resolving]
  - Sinusitis [Unknown]
  - Eosinophilia [Unknown]
  - Aspirin-exacerbated respiratory disease [Unknown]
  - Off label use [Unknown]
